FAERS Safety Report 19991044 (Version 1)
Quarter: 2021Q4

REPORT INFORMATION
  Report Type: Spontaneous
  Country: US (occurrence: US)
  Receive Date: 20211025
  Receipt Date: 20211025
  Transmission Date: 20220303
  Serious: Yes (Life-Threatening, Hospitalization)
  Sender: FDA-Public Use
  Company Number: None

PATIENT
  Age: 84 Year
  Sex: Male
  Weight: 66.5 kg

DRUGS (1)
  1. HEPARIN [Suspect]
     Active Substance: HEPARIN SODIUM
     Indication: Pulmonary embolism
     Dosage: ?          OTHER FREQUENCY:CONTINUOUS;
     Route: 041
     Dates: start: 20211020, end: 20211021

REACTIONS (3)
  - Hypotension [None]
  - Haemoglobin decreased [None]
  - Melaena [None]

NARRATIVE: CASE EVENT DATE: 20211020
